FAERS Safety Report 25078563 (Version 1)
Quarter: 2025Q1

REPORT INFORMATION
  Report Type: Spontaneous
  Country: US (occurrence: None)
  Receive Date: 20250313
  Receipt Date: 20250313
  Transmission Date: 20250409
  Serious: No
  Sender: FDA-CTU
  Company Number: None

PATIENT
  Age: 45 Year
  Sex: Male
  Weight: 99 kg

DRUGS (6)
  1. TRANYLCYPROMINE [Suspect]
     Active Substance: TRANYLCYPROMINE
     Indication: Depression
     Dates: start: 20230315
  2. PARNATE [Concomitant]
     Active Substance: TRANYLCYPROMINE SULFATE
  3. LAMICTAL [Concomitant]
     Active Substance: LAMOTRIGINE
  4. VRAYLAR [Concomitant]
     Active Substance: CARIPRAZINE
  5. LUNESTA [Concomitant]
     Active Substance: ESZOPICLONE
  6. KLONOPIN [Concomitant]
     Active Substance: CLONAZEPAM

REACTIONS (1)
  - Tachycardia [None]

NARRATIVE: CASE EVENT DATE: 20250313
